FAERS Safety Report 17505963 (Version 1)
Quarter: 2020Q1

REPORT INFORMATION
  Report Type: Spontaneous
  Country: US (occurrence: US)
  Receive Date: 20200305
  Receipt Date: 20200305
  Transmission Date: 20200409
  Serious: No
  Sender: FDA-Public Use
  Company Number: US-NEUROCRINE BIOSCIENCES INC.-2020NBI00618

PATIENT
  Sex: Female
  Weight: 50.85 kg

DRUGS (1)
  1. INGREZZA [Suspect]
     Active Substance: VALBENAZINE
     Indication: TARDIVE DYSKINESIA
     Route: 048
     Dates: start: 20200213

REACTIONS (4)
  - Tardive dyskinesia [Unknown]
  - Fatigue [Unknown]
  - Aphasia [Unknown]
  - Disturbance in attention [Unknown]
